FAERS Safety Report 12846364 (Version 1)
Quarter: 2016Q4

REPORT INFORMATION
  Report Type: Report from Study
  Country: US (occurrence: US)
  Receive Date: 20161014
  Receipt Date: 20161014
  Transmission Date: 20170207
  Serious: No
  Sender: FDA-Public Use
  Company Number: GXBR2013US001851

PATIENT
  Sex: Female
  Weight: 68.48 kg

DRUGS (6)
  1. ENOXAPARIN SODIUM. [Suspect]
     Active Substance: ENOXAPARIN SODIUM
     Dosage: 80 MG, BID
     Route: 058
     Dates: start: 20131002, end: 20131126
  2. PERMETHRIN. [Concomitant]
     Active Substance: PERMETHRIN
     Dosage: UNK DF, QD
     Route: 061
     Dates: start: 20131029, end: 20131103
  3. PERCOCET [Concomitant]
     Active Substance: ACETAMINOPHEN\OXYCODONE HYDROCHLORIDE
     Dosage: 5MG OXYCODONE/325MG ACETAMINOPHEN Q4H PRN
     Route: 048
     Dates: start: 20131002
  4. PRENATAL VITAMINS [Concomitant]
     Active Substance: VITAMINS
     Dosage: 1 DF, QD
     Route: 048
     Dates: start: 20130305
  5. HEPARIN [Suspect]
     Active Substance: HEPARIN SODIUM
     Dosage: UNK DF, UNK
  6. IRON SULFATE [Concomitant]
     Active Substance: FERROUS SULFATE ANHYDROUS
     Dosage: 324 MG, QHS
     Route: 048
     Dates: start: 20130805

REACTIONS (1)
  - Maternal exposure during pregnancy [Not Recovered/Not Resolved]
